FAERS Safety Report 9883340 (Version 4)
Quarter: 2014Q2

REPORT INFORMATION
  Report Type: Spontaneous
  Country: JP (occurrence: JP)
  Receive Date: 20140210
  Receipt Date: 20140417
  Transmission Date: 20141212
  Serious: Yes (Death, Life-Threatening)
  Sender: FDA-Public Use
  Company Number: JP-ROCHE-1343316

PATIENT
  Age: 62 Year
  Sex: Female
  Weight: 61 kg

DRUGS (9)
  1. PERJETA [Suspect]
     Indication: BREAST CANCER METASTATIC
     Dosage: DOSAGE IS UNCERTAIN.?STRENGHT: 420 MG/14 ML
     Route: 041
     Dates: start: 20131204, end: 20131204
  2. HERCEPTIN [Suspect]
     Indication: BREAST CANCER METASTATIC
     Route: 041
     Dates: start: 20131204, end: 20131204
  3. DOCETAXEL [Suspect]
     Indication: HER-2 POSITIVE BREAST CANCER
     Dosage: SINGLE DOSE ADMINISTRATION
     Route: 041
     Dates: start: 20131204, end: 20131204
  4. LOXOPROFEN [Concomitant]
     Indication: CANCER PAIN
     Route: 048
     Dates: start: 20131127
  5. SELBEX [Concomitant]
     Indication: CANCER PAIN
     Route: 048
     Dates: start: 20131127
  6. FENTOS TAPE [Concomitant]
     Indication: CANCER PAIN
     Route: 062
     Dates: start: 20131209, end: 20131218
  7. DEXART [Concomitant]
     Indication: PROPHYLAXIS
     Dosage: SINGLE DOSE ADMINISTRATION
     Route: 041
     Dates: start: 20131204, end: 20131204
  8. GRANISETRON HYDROCHLORIDE [Concomitant]
     Indication: PROPHYLAXIS
     Dosage: SINGLE DOSE ADMINISTRATION
     Route: 041
     Dates: start: 20131204, end: 20131204
  9. RESTAMIN [Concomitant]
     Indication: PROPHYLAXIS
     Dosage: SINGLE DOSE ADMINISTRATION
     Route: 048
     Dates: start: 20131204, end: 20131204

REACTIONS (4)
  - Gastrointestinal haemorrhage [Fatal]
  - Hepatic function abnormal [Fatal]
  - Tumour lysis syndrome [Recovered/Resolved]
  - Neutrophil count decreased [Recovered/Resolved]
